FAERS Safety Report 18651752 (Version 3)
Quarter: 2021Q1

REPORT INFORMATION
  Report Type: Spontaneous
  Country: DE (occurrence: DE)
  Receive Date: 20201223
  Receipt Date: 20210330
  Transmission Date: 20210419
  Serious: Yes (Other)
  Sender: FDA-Public Use
  Company Number: DE-AUROBINDO-AUR-APL-2020-014644

PATIENT
  Sex: Female
  Weight: 64 kg

DRUGS (8)
  1. VERTIGO?VOMEX [Concomitant]
     Indication: DIZZINESS
     Dosage: ONCE A DAY, 20MG/40MG, TID
     Route: 065
     Dates: start: 20200331
  2. LETROZOLE. [Suspect]
     Active Substance: LETROZOLE
     Indication: BREAST CANCER METASTATIC
     Dosage: 2.5 MILLIGRAM, ONCE A DAY
     Route: 048
     Dates: start: 20190925
  3. KISQALI [Suspect]
     Active Substance: RIBOCICLIB
     Dosage: UNK
     Route: 065
     Dates: start: 20191008
  4. KISQALI [Suspect]
     Active Substance: RIBOCICLIB
     Indication: BREAST CANCER METASTATIC
     Dosage: 600 MILLIGRAM, ONCE A DAY (SCHEMA 21 DAYS INTAKE, SEVEN DAYS PAUSE)
     Route: 048
     Dates: start: 20190925, end: 20191127
  5. KISQALI [Suspect]
     Active Substance: RIBOCICLIB
     Dosage: 400 MILLIGRAM, ONCE A DAY (SCHEMA 21 DAYS INTAKE, SEVEN DAYS PAUSE)
     Route: 048
     Dates: start: 20191206, end: 20200602
  6. KISQALI [Suspect]
     Active Substance: RIBOCICLIB
     Dosage: 400 MILLIGRAM, ONCE A DAY ((SCHEMA 21 DAYS INTAKE, SEVEN DAYS PAUSE)
     Route: 048
     Dates: start: 20200617, end: 20200713
  7. KISQALI [Suspect]
     Active Substance: RIBOCICLIB
     Dosage: 400 MILLIGRAM, ONCE A DAY (SCHEMA 21 DAYS INTAKE, SEVEN DAYS PAUSE)
     Route: 048
     Dates: start: 20200729, end: 20200825
  8. KISQALI [Suspect]
     Active Substance: RIBOCICLIB
     Dosage: 200 MILLIGRAM, ONCE A DAY
     Route: 048
     Dates: start: 20200910

REACTIONS (5)
  - Leukopenia [Not Recovered/Not Resolved]
  - Thrombocytopenia [Not Recovered/Not Resolved]
  - Dizziness [Not Recovered/Not Resolved]
  - Skin fissures [Recovered/Resolved]
  - Pain in extremity [Recovered/Resolved]

NARRATIVE: CASE EVENT DATE: 20191008
